FAERS Safety Report 16419776 (Version 2)
Quarter: 2019Q2

REPORT INFORMATION
  Report Type: Spontaneous
  Country: US (occurrence: US)
  Receive Date: 20190612
  Receipt Date: 20190614
  Transmission Date: 20190711
  Serious: Yes (Other)
  Sender: FDA-Public Use
  Company Number: US-PFIZER INC-2019246441

PATIENT
  Age: 50 Year
  Sex: Female

DRUGS (2)
  1. LYRICA [Concomitant]
     Active Substance: PREGABALIN
     Dosage: UNK
  2. PREMARIN [Suspect]
     Active Substance: ESTROGENS, CONJUGATED
     Dosage: UNK

REACTIONS (7)
  - Feeling abnormal [Unknown]
  - Restlessness [Unknown]
  - Irritability [Unknown]
  - Withdrawal syndrome [Unknown]
  - Insomnia [Unknown]
  - Endometriosis [Unknown]
  - Malaise [Unknown]
